FAERS Safety Report 24753296 (Version 1)
Quarter: 2024Q4

REPORT INFORMATION
  Report Type: Spontaneous
  Country: US (occurrence: US)
  Receive Date: 20241219
  Receipt Date: 20241219
  Transmission Date: 20250114
  Serious: No
  Sender: CHATTEM
  Company Number: US-OPELLA-2024OHG041032

PATIENT
  Age: 86 Year
  Sex: Female

DRUGS (10)
  1. FEXOFENADINE [Suspect]
     Active Substance: FEXOFENADINE HYDROCHLORIDE
     Indication: Lichenoid keratosis
     Route: 065
  2. FEXOFENADINE [Suspect]
     Active Substance: FEXOFENADINE HYDROCHLORIDE
     Indication: Dermatitis bullous
  3. BETAMETHASONE [Concomitant]
     Active Substance: BETAMETHASONE
     Indication: Lichenoid keratosis
     Route: 065
  4. BETAMETHASONE [Concomitant]
     Active Substance: BETAMETHASONE
     Indication: Dermatitis bullous
  5. TRIAMCINOLONE [Concomitant]
     Active Substance: TRIAMCINOLONE
     Indication: Lichenoid keratosis
     Route: 065
  6. TRIAMCINOLONE [Concomitant]
     Active Substance: TRIAMCINOLONE
     Indication: Dermatitis bullous
  7. LORATADINE [Concomitant]
     Active Substance: LORATADINE
     Indication: Lichenoid keratosis
     Route: 065
  8. LORATADINE [Concomitant]
     Active Substance: LORATADINE
     Indication: Dermatitis bullous
  9. DUPILUMAB [Concomitant]
     Active Substance: DUPILUMAB
     Indication: Lichenoid keratosis
     Route: 065
  10. DUPILUMAB [Concomitant]
     Active Substance: DUPILUMAB
     Indication: Dermatitis bullous

REACTIONS (2)
  - Off label use [Unknown]
  - No adverse event [Unknown]
